FAERS Safety Report 15551220 (Version 2)
Quarter: 2018Q4

REPORT INFORMATION
  Report Type: Spontaneous
  Country: US (occurrence: US)
  Receive Date: 20181025
  Receipt Date: 20181026
  Transmission Date: 20190205
  Serious: No
  Sender: FDA-Public Use
  Company Number: US-PFIZER INC-2018432691

PATIENT
  Age: 52 Year
  Sex: Female
  Weight: 55.79 kg

DRUGS (3)
  1. LEVOXYL [Suspect]
     Active Substance: LEVOTHYROXINE SODIUM
     Dosage: 100 UG, 1X/DAY [ONCE DAILY IN THE MORNING]
     Route: 048
     Dates: start: 201810, end: 201810
  2. ALIVE [Concomitant]
     Dosage: 1 DF, DAILY
     Route: 048
  3. LEVOXYL [Suspect]
     Active Substance: LEVOTHYROXINE SODIUM
     Indication: AUTOIMMUNE THYROIDITIS
     Dosage: 100 UG, 1X/DAY [ONCE DAILY IN THE MORNING]
     Route: 048
     Dates: start: 2010, end: 20181018

REACTIONS (4)
  - Influenza like illness [Recovering/Resolving]
  - Malaise [Recovering/Resolving]
  - Fatigue [Recovering/Resolving]
  - Cardiac disorder [Recovering/Resolving]

NARRATIVE: CASE EVENT DATE: 2010
